FAERS Safety Report 19803680 (Version 1)
Quarter: 2021Q3

REPORT INFORMATION
  Report Type: Spontaneous
  Country: US (occurrence: US)
  Receive Date: 20210908
  Receipt Date: 20210908
  Transmission Date: 20211014
  Serious: No
  Sender: FDA-Public Use
  Company Number: None

PATIENT
  Age: 65 Year
  Sex: Female
  Weight: 94.05 kg

DRUGS (4)
  1. LIPITOR [Suspect]
     Active Substance: ATORVASTATIN CALCIUM
     Indication: BLOOD CHOLESTEROL
     Dosage: ?          QUANTITY:30 TABLET(S);?
     Route: 048
     Dates: start: 20180918, end: 20180930
  2. LISINOPRIL (DOSAGE) GENERIC [Concomitant]
     Active Substance: LISINOPRIL
  3. AMLODIPINE (AMLODIPINE BESYLATE 10MG TAB) [Concomitant]
     Active Substance: AMLODIPINE BESYLATE
  4. LOVASTATIN. [Concomitant]
     Active Substance: LOVASTATIN

REACTIONS (4)
  - Myalgia [None]
  - Sciatica [None]
  - Gait disturbance [None]
  - Arthritis [None]

NARRATIVE: CASE EVENT DATE: 20180917
